FAERS Safety Report 5196982-3 (Version None)
Quarter: 2006Q4

REPORT INFORMATION
  Report Type: 
  Country: None (occurrence: None)
  Receive Date: 20061227
  Receipt Date: 20061218
  Transmission Date: 20070319
  Serious: Yes (Hospitalization)
  Sender: FDA-Public Use
  Company Number: 6028313

PATIENT
  Age: 81 Year
  Sex: Female

DRUGS (10)
  1. FOZITEC 10 MG (TABLET) (FOSINOPRIL) [Suspect]
     Indication: DRUG USE FOR UNKNOWN INDICATION
     Dosage: 10 MG (10 MG, 1 IN 1 D), ORAL
     Route: 048
     Dates: start: 20060915, end: 20061105
  2. LEVOTHYROXINE SODIUM [Suspect]
     Indication: DRUG USE FOR UNKNOWN INDICATION
     Dosage: SEE IMAGE, ORAL
     Route: 048
     Dates: end: 20061105
  3. LEVOTHYROXINE SODIUM [Suspect]
     Indication: DRUG USE FOR UNKNOWN INDICATION
     Dosage: SEE IMAGE, ORAL
     Route: 048
     Dates: start: 20061106
  4. LASIX [Suspect]
     Indication: DRUG USE FOR UNKNOWN INDICATION
     Dosage: SEE IMAGE, ORAL
     Route: 048
     Dates: end: 20061105
  5. LASIX [Suspect]
     Indication: DRUG USE FOR UNKNOWN INDICATION
     Dosage: SEE IMAGE, ORAL
     Route: 048
     Dates: start: 20061106
  6. GLUCOR (TABLET) (ACARBOSE) [Suspect]
     Indication: DRUG USE FOR UNKNOWN INDICATION
     Dosage: ORAL
     Route: 048
     Dates: end: 20061105
  7. HYDREA (CAPSULE) (HYDROXYCARBAMIDE) [Concomitant]
  8. PROPRANOLOL [Concomitant]
  9. PREVISCAN (TABLET) (FLUINDIONE) [Concomitant]
  10. PANTOPRAZOLE SODIUM [Concomitant]

REACTIONS (1)
  - RENAL FAILURE ACUTE [None]
